FAERS Safety Report 17648000 (Version 1)
Quarter: 2020Q2

REPORT INFORMATION
  Report Type: Spontaneous
  Country: CO (occurrence: CO)
  Receive Date: 20200408
  Receipt Date: 20200408
  Transmission Date: 20200713
  Serious: Yes (Hospitalization)
  Sender: FDA-Public Use
  Company Number: NVSC2020CO066009

PATIENT
  Sex: Male
  Weight: 68 kg

DRUGS (2)
  1. CLOPIDOGREL [Concomitant]
     Active Substance: CLOPIDOGREL BISULFATE
     Indication: CAROTID ARTERY BYPASS
     Dosage: 75 MG, QD
     Route: 065
  2. TRILEPTAL [Suspect]
     Active Substance: OXCARBAZEPINE
     Indication: PRODUCT USED FOR UNKNOWN INDICATION
     Dosage: 300 MG, Q8H (STARTED ABOUT 10 YEARS AGO)
     Route: 065

REACTIONS (10)
  - Muscular weakness [Unknown]
  - Anaemia [Unknown]
  - Weight decreased [Unknown]
  - Meningitis [Unknown]
  - Sinusitis [Unknown]
  - Pneumonia [Unknown]
  - Blood sodium decreased [Unknown]
  - Pain [Not Recovered/Not Resolved]
  - Neuralgia [Unknown]
  - Drug ineffective [Unknown]
